FAERS Safety Report 19962267 (Version 3)
Quarter: 2022Q3

REPORT INFORMATION
  Report Type: Spontaneous
  Country: US (occurrence: US)
  Receive Date: 20211018
  Receipt Date: 20220810
  Transmission Date: 20221027
  Serious: Yes (Other)
  Sender: FDA-Public Use
  Company Number: US-VIFOR (INTERNATIONAL) INC.-VIT-2021-07640

PATIENT
  Age: 61 Year
  Sex: Male

DRUGS (9)
  1. VELTASSA [Suspect]
     Active Substance: PATIROMER
     Indication: Hyperkalaemia
     Dosage: DISSOLVE CONTENTS OF 1 PACKET INTO 1/3 CUP OF WATER AND DRINK FULL AMOUNT ONCE DAILY AS DIRECTED
     Route: 048
     Dates: start: 20160611
  2. LOSARTAN [Suspect]
     Active Substance: LOSARTAN
     Indication: Product used for unknown indication
  3. AMLODIPINE BESYLATE\BENAZEPRIL HYDROCHLORIDE [Concomitant]
     Active Substance: AMLODIPINE BESYLATE\BENAZEPRIL HYDROCHLORIDE
     Dosage: 5-10MG
  4. ATENOLOL [Concomitant]
     Active Substance: ATENOLOL
  5. CARVEDILOL [Concomitant]
     Active Substance: CARVEDILOL
  6. FOSRENOL [Concomitant]
     Active Substance: LANTHANUM CARBONATE
  7. SODIUM BICARBONATE [Concomitant]
     Active Substance: SODIUM BICARBONATE
  8. TAMSULOSIN [Concomitant]
     Active Substance: TAMSULOSIN
  9. EPCLUSA [Concomitant]
     Active Substance: SOFOSBUVIR\VELPATASVIR
     Dosage: 400-100

REACTIONS (3)
  - Hepatitis C [Not Recovered/Not Resolved]
  - Blood potassium increased [Not Recovered/Not Resolved]
  - Blood pressure increased [Not Recovered/Not Resolved]
